FAERS Safety Report 6059542-8 (Version None)
Quarter: 2009Q1

REPORT INFORMATION
  Report Type: 
  Country: None (occurrence: None)
  Receive Date: 20090127
  Receipt Date: 20090127
  Transmission Date: 20090719
  Serious: Yes (Hospitalization)
  Sender: FDA-Public Use
  Company Number: None

PATIENT
  Age: 65 Year
  Sex: Female

DRUGS (11)
  1. TRIAMTERENE AND HYDROCHLOROTHIAZIDE [Suspect]
     Indication: HYPERTENSION
     Dosage: 1 TABLET DAILY PO
     Route: 048
  2. FLUOXETINE HCL [Suspect]
     Indication: DEPRESSION
     Dosage: 20MG TID PO
     Route: 048
  3. LISINOPRIL [Suspect]
  4. AVANDIA [Concomitant]
  5. WELCHOL [Concomitant]
  6. NERONTIN [Concomitant]
  7. METFORMIN HCL [Suspect]
  8. POTASSIUM CHLORIDE [Concomitant]
  9. VYTORIN [Suspect]
  10. ASPIRIN [Concomitant]
  11. JANUVIA [Suspect]

REACTIONS (4)
  - ABASIA [None]
  - ALCOHOL ABUSE [None]
  - ASTHENIA [None]
  - HYPONATRAEMIA [None]
